FAERS Safety Report 4613661-9 (Version None)
Quarter: 2005Q1

REPORT INFORMATION
  Report Type: 
  Country: None (occurrence: None)
  Receive Date: 20050318
  Receipt Date: 20050318
  Transmission Date: 20050727
  Serious: Yes (Hospitalization)
  Sender: FDA-Public Use
  Company Number: None

PATIENT
  Age: 54 Year
  Sex: Female

DRUGS (9)
  1. TAXOTERE [Suspect]
     Indication: BREAST CANCER STAGE IV
     Dosage: STARTED REGIMEN 11/16/04; 2/28/05 = DAY #8 OF CYCLE 5
  2. TAXOTERE [Suspect]
     Indication: CHEMOTHERAPY
     Dosage: STARTED REGIMEN 11/16/04; 2/28/05 = DAY #8 OF CYCLE 5
  3. ADRIAMYCIN PFS [Suspect]
  4. CYTOXAN [Suspect]
  5. PROCRIT [Concomitant]
  6. ARANESP [Concomitant]
  7. ANTIBIOTICS [Concomitant]
  8. PAIN MEDS [Concomitant]
  9. FLUIDS [Concomitant]

REACTIONS (6)
  - ABDOMINAL PAIN LOWER [None]
  - DIVERTICULITIS [None]
  - NAUSEA [None]
  - NEUTROPENIA [None]
  - SEPSIS [None]
  - VOMITING [None]
